FAERS Safety Report 7034152-4 (Version None)
Quarter: 2010Q4

REPORT INFORMATION
  Report Type: 
  Country: None (occurrence: None)
  Receive Date: 20101008
  Receipt Date: 20100927
  Transmission Date: 20110411
  Serious: Yes (Other)
  Sender: FDA-Public Use
  Company Number: KR-BAYER-201040964GPV

PATIENT
  Sex: Female

DRUGS (1)
  1. MIRENA [Suspect]
     Indication: CONTRACEPTION
     Route: 015
     Dates: start: 20100927

REACTIONS (3)
  - DEAFNESS TRANSITORY [None]
  - DIZZINESS [None]
  - LOSS OF CONSCIOUSNESS [None]
